FAERS Safety Report 6577888-1 (Version None)
Quarter: 2010Q1

REPORT INFORMATION
  Report Type: 
  Country: None (occurrence: None)
  Receive Date: 20100211
  Receipt Date: 20100203
  Transmission Date: 20100710
  Serious: Yes (Other)
  Sender: FDA-Public Use
  Company Number: JP-PFIZER INC-2010017530

PATIENT
  Age: 65 Year
  Sex: Male

DRUGS (1)
  1. TOLTERODINE TARTRATE [Suspect]
     Dosage: UNK
     Dates: start: 20100128

REACTIONS (1)
  - BLOOD PRESSURE INCREASED [None]
